FAERS Safety Report 21772062 (Version 10)
Quarter: 2024Q1

REPORT INFORMATION
  Report Type: Report from Study
  Country: US (occurrence: US)
  Receive Date: 20221223
  Receipt Date: 20240108
  Transmission Date: 20240410
  Serious: No
  Sender: FDA-Public Use
  Company Number: US-002147023-NVSC2022US296302

PATIENT
  Sex: Male

DRUGS (1)
  1. KESIMPTA [Suspect]
     Active Substance: OFATUMUMAB
     Indication: Multiple sclerosis
     Dosage: 20 MG, QW
     Route: 058
     Dates: start: 20221220

REACTIONS (11)
  - Dehydration [Unknown]
  - Gastroenteritis viral [Unknown]
  - Fall [Unknown]
  - Headache [Unknown]
  - Fatigue [Unknown]
  - Gait disturbance [Unknown]
  - Muscle strength abnormal [Unknown]
  - Insomnia [Unknown]
  - Back pain [Recovering/Resolving]
  - Injection site pain [Unknown]
  - Injection site haemorrhage [Unknown]
